FAERS Safety Report 5940816-3 (Version None)
Quarter: 2008Q4

REPORT INFORMATION
  Report Type: 
  Country: None (occurrence: None)
  Receive Date: 20081030
  Receipt Date: 20081015
  Transmission Date: 20090506
  Serious: Yes (Other)
  Sender: FDA-Public Use
  Company Number: 8038234

PATIENT
  Age: 28 Year
  Sex: Female

DRUGS (14)
  1. PREDNISOLONE [Suspect]
     Dates: start: 20040501
  2. PREDNISOLONE [Suspect]
     Dates: start: 20050801
  3. CYCLOSPORINE [Suspect]
     Indication: CONJUNCTIVITIS
     Dates: start: 20050801, end: 20060201
  4. CYCLOSPORINE [Suspect]
     Indication: CONJUNCTIVOPLASTY
     Dates: start: 20050801, end: 20060201
  5. CYCLOSPORINE [Suspect]
     Indication: STEM CELL TRANSPLANT
     Dates: start: 20050801, end: 20060201
  6. CYCLOSPORINE [Suspect]
     Indication: CONJUNCTIVITIS
  7. CYCLOSPORINE [Suspect]
     Indication: CONJUNCTIVOPLASTY
  8. CYCLOSPORINE [Suspect]
     Indication: STEM CELL TRANSPLANT
  9. MYCOPHENOLATE SODIUM [Suspect]
     Indication: CONJUNCTIVITIS
     Dates: start: 20040601, end: 20060501
  10. MYCOPHENOLATE SODIUM [Suspect]
     Indication: CONJUNCTIVOPLASTY
     Dates: start: 20040601, end: 20060501
  11. MYCOPHENOLATE SODIUM [Suspect]
     Indication: STEM CELL TRANSPLANT
     Dates: start: 20040601, end: 20060501
  12. MYCOPHENOLATE SODIUM [Suspect]
     Indication: CONJUNCTIVITIS
     Dates: start: 20040601, end: 20060501
  13. MYCOPHENOLATE SODIUM [Suspect]
     Indication: CONJUNCTIVOPLASTY
     Dates: start: 20040601, end: 20060501
  14. MYCOPHENOLATE SODIUM [Suspect]
     Indication: STEM CELL TRANSPLANT
     Dates: start: 20040601, end: 20060501

REACTIONS (11)
  - BETA HAEMOLYTIC STREPTOCOCCAL INFECTION [None]
  - CANDIDIASIS [None]
  - CONJUNCTIVAL DISORDER [None]
  - CONJUNCTIVITIS [None]
  - CORNEAL INFECTION [None]
  - CORNEAL PERFORATION [None]
  - CORNEAL TRANSPLANT [None]
  - EYE INFECTION STAPHYLOCOCCAL [None]
  - KERATITIS BACTERIAL [None]
  - SCLERAL GRAFT [None]
  - STREPTOCOCCAL INFECTION [None]
